FAERS Safety Report 24910765 (Version 1)
Quarter: 2025Q1

REPORT INFORMATION
  Report Type: Spontaneous
  Country: NL (occurrence: NL)
  Receive Date: 20250131
  Receipt Date: 20250131
  Transmission Date: 20250409
  Serious: Yes (Other)
  Sender: TAKEDA
  Company Number: NL-PROTHYA BIOSOLUTIONS-PR2025ZZ003590

PATIENT

DRUGS (1)
  1. HUMAN IMMUNOGLOBULIN G [Suspect]
     Active Substance: HUMAN IMMUNOGLOBULIN G
     Indication: Isoimmune haemolytic disease

REACTIONS (2)
  - Necrotising enterocolitis neonatal [Unknown]
  - Off label use [Unknown]
